FAERS Safety Report 14678950 (Version 1)
Quarter: 2018Q1

REPORT INFORMATION
  Report Type: Spontaneous
  Country: TR (occurrence: TR)
  Receive Date: 20180326
  Receipt Date: 20180326
  Transmission Date: 20180509
  Serious: Yes (Death)
  Sender: FDA-Public Use
  Company Number: PHHY2018TR043873

PATIENT
  Age: 15 Year
  Sex: Female
  Weight: 73 kg

DRUGS (7)
  1. CISPLATIN. [Suspect]
     Active Substance: CISPLATIN
     Indication: OVARIAN GERM CELL TUMOUR
     Route: 065
  2. BLEOMYCIN [Suspect]
     Active Substance: BLEOMYCIN SULFATE
     Indication: OVARIAN GERM CELL TUMOUR
     Route: 065
  3. IFOSFAMIDE. [Suspect]
     Active Substance: IFOSFAMIDE
     Indication: OVARIAN GERM CELL TUMOUR
     Route: 065
  4. MESNA. [Suspect]
     Active Substance: MESNA
     Indication: OVARIAN GERM CELL TUMOUR
     Route: 065
  5. ETOPOSIDE. [Suspect]
     Active Substance: ETOPOSIDE
     Indication: OVARIAN GERM CELL TUMOUR
     Route: 065
  6. CARBOPLATIN. [Suspect]
     Active Substance: CARBOPLATIN
     Indication: OVARIAN GERM CELL TUMOUR
     Route: 065
  7. DOXORUBICIN [Suspect]
     Active Substance: DOXORUBICIN
     Indication: OVARIAN GERM CELL TUMOUR
     Route: 065

REACTIONS (6)
  - Synovial sarcoma [Fatal]
  - Abdominal distension [Fatal]
  - Abdominal mass [Fatal]
  - Malignant neoplasm progression [Fatal]
  - Abdominal pain [Fatal]
  - Recurrent cancer [Fatal]
